FAERS Safety Report 15937474 (Version 1)
Quarter: 2019Q1

REPORT INFORMATION
  Report Type: Spontaneous
  Country: US (occurrence: US)
  Receive Date: 20190117
  Receipt Date: 20190117
  Transmission Date: 20190417
  Serious: Yes (Other)
  Sender: FDA-Public Use
  Company Number: None

PATIENT
  Age: 31 Year
  Sex: Male
  Weight: 189.15 kg

DRUGS (1)
  1. GENERIC SYNTHROID 150 MG [Suspect]
     Active Substance: LEVOTHYROXINE SODIUM
     Indication: HYPOTHYROIDISM
     Route: 048
     Dates: start: 20180416, end: 20180516

REACTIONS (5)
  - Product substitution issue [None]
  - Fatigue [None]
  - Thyroid hormones decreased [None]
  - Hypersomnia [None]
  - Thyroid hormones increased [None]
